FAERS Safety Report 23116455 (Version 3)
Quarter: 2025Q1

REPORT INFORMATION
  Report Type: Spontaneous
  Country: JP (occurrence: JP)
  Receive Date: 20231027
  Receipt Date: 20250213
  Transmission Date: 20250409
  Serious: Yes (Life-Threatening)
  Sender: EISAI
  Company Number: JP-Eisai-202308621_DVG_P_1

PATIENT
  Age: 86 Year
  Sex: Female
  Weight: 45 kg

DRUGS (6)
  1. DAYVIGO [Suspect]
     Active Substance: LEMBOREXANT
     Indication: Insomnia
     Dates: start: 20230921, end: 20231005
  2. DAYVIGO [Suspect]
     Active Substance: LEMBOREXANT
     Indication: Prophylaxis
  3. DAYVIGO [Suspect]
     Active Substance: LEMBOREXANT
  4. LIMAPROST [Concomitant]
     Active Substance: LIMAPROST
     Indication: Product used for unknown indication
  5. RAMELTEON [Concomitant]
     Active Substance: RAMELTEON
     Indication: Insomnia
  6. RAMELTEON [Concomitant]
     Active Substance: RAMELTEON
     Indication: Prophylaxis

REACTIONS (1)
  - Decreased appetite [Recovered/Resolved]

NARRATIVE: CASE EVENT DATE: 20230921
